FAERS Safety Report 4604314-1 (Version None)
Quarter: 2005Q1

REPORT INFORMATION
  Report Type: 
  Country: None (occurrence: None)
  Receive Date: 20050310
  Receipt Date: 20050307
  Transmission Date: 20050727
  Serious: Yes (Hospitalization)
  Sender: FDA-Public Use
  Company Number: 004215

PATIENT
  Age: 34 Year
  Sex: Female
  Weight: 65.8 kg

DRUGS (3)
  1. CLARAVIS [Suspect]
     Dosage: SEE IMAGE
     Dates: start: 20040419, end: 20041001
  2. CLARAVIS [Suspect]
     Dosage: SEE IMAGE
     Dates: start: 20041001, end: 20041228
  3. VIVELLE [Concomitant]

REACTIONS (8)
  - ABDOMINAL PAIN [None]
  - OVARIAN CYST [None]
  - PELVIC ABSCESS [None]
  - URINARY RETENTION [None]
  - URINARY TRACT DISORDER [None]
  - URINARY TRACT INJURY [None]
  - VAGINAL HAEMORRHAGE [None]
  - VULVOVAGINAL DISCOMFORT [None]
